FAERS Safety Report 13952633 (Version 2)
Quarter: 2017Q4

REPORT INFORMATION
  Report Type: Spontaneous
  Country: CA (occurrence: CA)
  Receive Date: 20170911
  Receipt Date: 20171118
  Transmission Date: 20180320
  Serious: Yes (Life-Threatening)
  Sender: FDA-Public Use
  Company Number: CA-ROCHE-1990862

PATIENT
  Age: 46 Year
  Sex: Male
  Weight: 86 kg

DRUGS (1)
  1. ALTEPLASE. [Suspect]
     Active Substance: ALTEPLASE
     Indication: LACUNAR STROKE
     Dosage: 100MG /100 ML
     Route: 042
     Dates: start: 20170202, end: 20170202

REACTIONS (6)
  - Altered state of consciousness [Recovered/Resolved]
  - Anaphylactic reaction [Recovered/Resolved]
  - Bradycardia [Recovered/Resolved]
  - Endotracheal intubation [Recovered/Resolved]
  - Hypoxia [Recovered/Resolved]
  - Intensive care [Recovered/Resolved]

NARRATIVE: CASE EVENT DATE: 20170202
